FAERS Safety Report 15929641 (Version 1)
Quarter: 2019Q1

REPORT INFORMATION
  Report Type: Spontaneous
  Country: US (occurrence: US)
  Receive Date: 20190206
  Receipt Date: 20190206
  Transmission Date: 20190417
  Serious: No
  Sender: FDA-Public Use
  Company Number: US-SA-2019SA033102

PATIENT
  Age: 73 Year
  Sex: Female

DRUGS (6)
  1. LANTUS [Suspect]
     Active Substance: INSULIN GLARGINE
     Indication: TYPE 2 DIABETES MELLITUS
     Dosage: 35 U
  2. JARDIANCE [Concomitant]
     Active Substance: EMPAGLIFLOZIN
  3. LEVEMIR [Concomitant]
     Active Substance: INSULIN DETEMIR
     Dosage: 35 U, HS
  4. NOVOLOG [Concomitant]
     Active Substance: INSULIN ASPART
  5. HUMALOG [Concomitant]
     Active Substance: INSULIN LISPRO
  6. METOFORMIN [Concomitant]
     Active Substance: METFORMIN HYDROCHLORIDE

REACTIONS (1)
  - Inappropriate schedule of product administration [Unknown]
